FAERS Safety Report 11538032 (Version 1)
Quarter: 2015Q3

REPORT INFORMATION
  Report Type: Spontaneous
  Country: HR (occurrence: HR)
  Receive Date: 20150922
  Receipt Date: 20150922
  Transmission Date: 20151125
  Serious: Yes (Hospitalization, Other)
  Sender: FDA-Public Use
  Company Number: HR-ELI_LILLY_AND_COMPANY-HR201508006014

PATIENT
  Age: 69 Year
  Sex: Female

DRUGS (5)
  1. FEVARIN [Concomitant]
     Active Substance: FLUVOXAMINE MALEATE
     Dosage: 100 MG, UNKNOWN
     Route: 065
  2. TEGRETOL [Concomitant]
     Active Substance: CARBAMAZEPINE
     Dosage: 400 MG, UNKNOWN
     Route: 065
  3. SULPIRID [Concomitant]
     Active Substance: SULPIRIDE
     Dosage: 100 MG, UNKNOWN
     Route: 065
  4. DIAZEPAM. [Concomitant]
     Active Substance: DIAZEPAM
     Dosage: 5 MG, UNKNOWN
     Route: 065
  5. ZYPADHERA [Suspect]
     Active Substance: OLANZAPINE PAMOATE
     Indication: DELUSIONAL DISORDER, UNSPECIFIED TYPE
     Dosage: 300 MG, MONTHLY (1/M)
     Route: 065
     Dates: start: 201406

REACTIONS (4)
  - Dysarthria [Recovering/Resolving]
  - Confusional state [Recovering/Resolving]
  - Blood pressure increased [Recovering/Resolving]
  - Disorientation [Recovering/Resolving]

NARRATIVE: CASE EVENT DATE: 20150818
